FAERS Safety Report 5738570-3 (Version None)
Quarter: 2008Q2

REPORT INFORMATION
  Report Type: 
  Country: None (occurrence: None)
  Receive Date: 20080514
  Receipt Date: 20080514
  Transmission Date: 20081010
  Serious: Yes (Death, Other)
  Sender: FDA-Public Use
  Company Number: None

PATIENT
  Age: 75 Year
  Sex: Male

DRUGS (1)
  1. DIGITEK 0.125MG [Suspect]
     Dosage: 1 DAILY BY MOUTH
     Route: 048
     Dates: start: 20080121

REACTIONS (1)
  - PHARMACEUTICAL PRODUCT COMPLAINT [None]
